FAERS Safety Report 12846658 (Version 25)
Quarter: 2019Q3

REPORT INFORMATION
  Report Type: Report from Study
  Country: GB (occurrence: GB)
  Receive Date: 20161014
  Receipt Date: 20190712
  Transmission Date: 20191004
  Serious: Yes (Hospitalization, Other)
  Sender: FDA-Public Use
  Company Number: GB-BRISTOL-MYERS SQUIBB COMPANY-BMS-2016-084881

PATIENT
  Age: 77 Year
  Sex: Female

DRUGS (1)
  1. ABATACEPT [Suspect]
     Active Substance: ABATACEPT
     Indication: RHEUMATOID ARTHRITIS
     Dosage: 125 MG, QWK
     Route: 058
     Dates: start: 20141031

REACTIONS (21)
  - Cerebrovascular accident [Recovering/Resolving]
  - Product storage error [Unknown]
  - Decubitus ulcer [Unknown]
  - Infection [Unknown]
  - Lower respiratory tract infection [Unknown]
  - Joint dislocation [Unknown]
  - Urinary tract infection [Unknown]
  - Urinary incontinence [Unknown]
  - Paralysis [Recovering/Resolving]
  - Haemorrhage subcutaneous [Unknown]
  - Malaise [Unknown]
  - Limb discomfort [Unknown]
  - Gastric disorder [Unknown]
  - Musculoskeletal pain [Unknown]
  - Cough [Unknown]
  - Peripheral swelling [Unknown]
  - Pain [Unknown]
  - Erythema [Unknown]
  - Dysphagia [Unknown]
  - Haemorrhage [Unknown]
  - Localised infection [Unknown]

NARRATIVE: CASE EVENT DATE: 20161003
